FAERS Safety Report 7578243-8 (Version None)
Quarter: 2011Q2

REPORT INFORMATION
  Report Type: 
  Country: None (occurrence: None)
  Receive Date: 20110628
  Receipt Date: 20110617
  Transmission Date: 20111010
  Serious: Yes (Hospitalization)
  Sender: FDA-Public Use
  Company Number: BR-US-EMD SERONO, INC.-7066512

PATIENT
  Sex: Female

DRUGS (3)
  1. CAPTOPRIL [Concomitant]
  2. HYDROCHLOROTHIAZIDE [Concomitant]
  3. REBIF [Suspect]
     Indication: RELAPSING-REMITTING MULTIPLE SCLEROSIS
     Dates: start: 20110109

REACTIONS (4)
  - ASTHENIA [None]
  - BLOOD POTASSIUM DECREASED [None]
  - BLOOD CALCIUM DECREASED [None]
  - ANAEMIA [None]
